FAERS Safety Report 5819209-5 (Version None)
Quarter: 2008Q3

REPORT INFORMATION
  Report Type: 
  Country: None (occurrence: None)
  Receive Date: 20080723
  Receipt Date: 20080714
  Transmission Date: 20090109
  Serious: Yes (Other)
  Sender: FDA-Public Use
  Company Number: US-GENENTECH-264521

PATIENT
  Age: 49 Year
  Sex: Female

DRUGS (3)
  1. AVASTIN [Suspect]
     Indication: BREAST CANCER METASTATIC
  2. AVASTIN [Suspect]
     Dosage: 7.5 MG/KG, UNK
  3. ABRAXANE [Concomitant]
     Indication: BREAST CANCER METASTATIC

REACTIONS (1)
  - EJECTION FRACTION DECREASED [None]
